FAERS Safety Report 18123228 (Version 1)
Quarter: 2020Q3

REPORT INFORMATION
  Report Type: Report from Study
  Country: JP (occurrence: JP)
  Receive Date: 20200807
  Receipt Date: 20200807
  Transmission Date: 20201103
  Serious: Yes (Death, Other)
  Sender: FDA-Public Use
  Company Number: JP-KYOWAKIRIN-2020BKK012663

PATIENT

DRUGS (8)
  1. SAFINAMIDE [Suspect]
     Active Substance: SAFINAMIDE
     Indication: PARKINSON^S DISEASE
     Dosage: 50 MG, QD
     Route: 065
  2. AMANTADINE HYDROCHLORIDE. [Concomitant]
     Active Substance: AMANTADINE HYDROCHLORIDE
     Indication: PARKINSON^S DISEASE
     Dosage: UNK
     Route: 065
  3. ZONISAMIDE. [Concomitant]
     Active Substance: ZONISAMIDE
     Indication: PARKINSON^S DISEASE
     Dosage: UNK
     Route: 065
  4. LEVODOPA [Concomitant]
     Active Substance: LEVODOPA
     Indication: PARKINSON^S DISEASE
     Dosage: UNK
     Route: 065
  5. DROXIDOPA [Concomitant]
     Active Substance: DROXIDOPA
     Indication: PARKINSON^S DISEASE
     Dosage: UNK
     Route: 065
  6. NOURIAST TABLETS [Suspect]
     Active Substance: ISTRADEFYLLINE
     Indication: PARKINSON^S DISEASE
     Dosage: UNK
     Route: 065
  7. SAFINAMIDE [Suspect]
     Active Substance: SAFINAMIDE
     Dosage: 100 MG/DAY
  8. ENTACAPONE. [Concomitant]
     Active Substance: ENTACAPONE
     Indication: PARKINSON^S DISEASE
     Dosage: UNK
     Route: 065

REACTIONS (42)
  - Femoral neck fracture [Unknown]
  - Nasopharyngitis [Unknown]
  - Fall [Unknown]
  - Influenza [Unknown]
  - Anaemia [Unknown]
  - Headache [Unknown]
  - Gastroenteritis [Unknown]
  - Drowning [Fatal]
  - Sudden onset of sleep [Unknown]
  - Pneumonia [Unknown]
  - Wound [Unknown]
  - Rib fracture [Unknown]
  - Dehydration [Unknown]
  - Eczema asteatotic [Unknown]
  - Aspartate aminotransferase increased [Unknown]
  - Arthropod sting [Unknown]
  - Blood creatine phosphokinase increased [Unknown]
  - Hallucination, visual [Unknown]
  - Back pain [Unknown]
  - Dental caries [Unknown]
  - Alanine aminotransferase increased [Unknown]
  - Dermatitis [Unknown]
  - Contusion [Unknown]
  - Eczema [Unknown]
  - Herpes zoster [Unknown]
  - Vertigo [Unknown]
  - Insomnia [Unknown]
  - Nausea [Unknown]
  - Constipation [Unknown]
  - Somnolence [Unknown]
  - Periarthritis [Unknown]
  - Dyskinesia [Unknown]
  - Parkinson^s disease [Unknown]
  - Arthralgia [Unknown]
  - Pyrexia [Unknown]
  - Upper respiratory tract inflammation [Unknown]
  - Dizziness [Unknown]
  - Skin abrasion [Unknown]
  - Chillblains [Unknown]
  - Cystitis [Unknown]
  - Gastritis [Unknown]
  - Diarrhoea [Unknown]
